FAERS Safety Report 19614996 (Version 1)
Quarter: 2021Q3

REPORT INFORMATION
  Report Type: Report from Study
  Country: CO (occurrence: CO)
  Receive Date: 20210727
  Receipt Date: 20210727
  Transmission Date: 20211014
  Serious: Yes (Hospitalization, Other)
  Sender: FDA-Public Use
  Company Number: CO-SHIRE-CO202003497

PATIENT
  Age: 28 Year
  Sex: Female
  Weight: 80 kg

DRUGS (3)
  1. HUMAN IMMUNOGLOBULIN; HYALURONIDASE [Suspect]
     Active Substance: HUMAN IMMUNOGLOBULIN G\HYALURONIDASE RECOMBINANT HUMAN
     Dosage: 30 GRAM, MONTHLY
     Route: 058
     Dates: start: 20191230
  2. HUMAN IMMUNOGLOBULIN; HYALURONIDASE [Suspect]
     Active Substance: HUMAN IMMUNOGLOBULIN G\HYALURONIDASE RECOMBINANT HUMAN
     Indication: PRIMARY IMMUNODEFICIENCY SYNDROME
     Dosage: UNK
     Route: 065
     Dates: start: 20191230
  3. HUMAN IMMUNOGLOBULIN; HYALURONIDASE [Suspect]
     Active Substance: HUMAN IMMUNOGLOBULIN G\HYALURONIDASE RECOMBINANT HUMAN
     Dosage: 25 GRAM
     Route: 065

REACTIONS (3)
  - Depression [Recovering/Resolving]
  - Suicidal ideation [Recovering/Resolving]
  - Weight increased [Unknown]

NARRATIVE: CASE EVENT DATE: 20200113
